FAERS Safety Report 7013219-0 (Version None)
Quarter: 2010Q3

REPORT INFORMATION
  Report Type: 
  Country: None (occurrence: None)
  Receive Date: 20100924
  Receipt Date: 20100916
  Transmission Date: 20110219
  Serious: Yes (Other)
  Sender: FDA-Public Use
  Company Number: US-ABBOTT-10P-163-0671554-00

PATIENT
  Sex: Female
  Weight: 90.8 kg

DRUGS (5)
  1. DEPAKOTE ER [Suspect]
     Indication: CONVULSION
     Dates: start: 20050101
  2. DEPAKOTE ER [Suspect]
     Dates: start: 20091001
  3. DIAZEPAM [Suspect]
     Indication: MUSCLE SPASMS
  4. DIAZEPAM [Suspect]
  5. FLEXERIL [Concomitant]
     Indication: MUSCLE SPASMS

REACTIONS (7)
  - CONVULSION [None]
  - FALL [None]
  - FRACTURE [None]
  - HEAD INJURY [None]
  - JOINT INJURY [None]
  - SOMNOLENCE [None]
  - SUDDEN ONSET OF SLEEP [None]
